FAERS Safety Report 5169237-0 (Version None)
Quarter: 2006Q4

REPORT INFORMATION
  Report Type: 
  Country: None (occurrence: None)
  Receive Date: 20061204
  Receipt Date: 20061024
  Transmission Date: 20070319
  Serious: Yes (Death)
  Sender: FDA-Public Use
  Company Number: AND_AAPCC_2006_0349

PATIENT
  Age: 24 Year

DRUGS (3)
  1. ACETAMINOPHEN W/ PROPOXYPHENE HCL [Suspect]
     Dosage: INGESTION/INHALATION
     Route: 055
  2. ACETAMINOPHEN/DIPHENHYDRAMINE [Suspect]
     Dosage: INGESTION/INHALATION
     Route: 055
  3. COCAINE [Suspect]
     Dosage: INGESTION/INHALATION
     Route: 055

REACTIONS (1)
  - INTENTIONAL DRUG MISUSE [None]
